FAERS Safety Report 13024056 (Version 1)
Quarter: 2016Q4

REPORT INFORMATION
  Report Type: Spontaneous
  Country: US (occurrence: US)
  Receive Date: 20161213
  Receipt Date: 20161213
  Transmission Date: 20170207
  Serious: Yes (Other)
  Sender: FDA-Public Use
  Company Number: US-PURDUE PHARMA-USA-2016-0135181

PATIENT
  Sex: Female

DRUGS (1)
  1. SENOKOT-S [Suspect]
     Active Substance: DOCUSATE SODIUM\SENNOSIDES
     Indication: CONSTIPATION
     Dosage: 5-6 TABLET, SINGLE
     Route: 048
     Dates: start: 201610

REACTIONS (2)
  - Prescribed overdose [Unknown]
  - Constipation [Unknown]

NARRATIVE: CASE EVENT DATE: 2016
